FAERS Safety Report 5216465-1 (Version None)
Quarter: 2006Q4

REPORT INFORMATION
  Report Type: 
  Country: None (occurrence: None)
  Receive Date: 20061129
  Receipt Date: 20020918
  Transmission Date: 20070319
  Serious: Yes (Hospitalization)
  Sender: FDA-Public Use
  Company Number: 2002UW12722

PATIENT
  Sex: Female

DRUGS (1)
  1. FASLODEX [Suspect]

REACTIONS (1)
  - PYREXIA [None]
